FAERS Safety Report 21068053 (Version 1)
Quarter: 2022Q3

REPORT INFORMATION
  Report Type: Spontaneous
  Country: US (occurrence: None)
  Receive Date: 20220711
  Receipt Date: 20220711
  Transmission Date: 20221027
  Serious: Yes (Death)
  Sender: FDA-Public Use
  Company Number: None

PATIENT
  Age: 81 Year
  Sex: Male
  Weight: 82.83 kg

DRUGS (14)
  1. CAPECITABINE [Suspect]
     Active Substance: CAPECITABINE
     Indication: Colon cancer
     Dosage: 1500MG TWICE A DAY ORAL?
     Route: 048
  2. ACTOS [Concomitant]
  3. ASPIRIN [Concomitant]
     Active Substance: ASPIRIN
  4. ELIQUIS FERROUS SULFATE [Concomitant]
  5. FINASTERIDE [Concomitant]
  6. GLIMEPIRIDE LOPID [Concomitant]
  7. METFORMIN [Concomitant]
  8. OXYCODONE [Concomitant]
  9. PEPCID [Concomitant]
  10. PROCHLORPERAZINE [Concomitant]
  11. SIMVASTATIN [Concomitant]
  12. SUCRALFATE [Concomitant]
  13. TAMSULOSIN HCI [Concomitant]
  14. VITAMIN B12 [Concomitant]

REACTIONS (1)
  - Death [None]
